FAERS Safety Report 9553310 (Version 1)
Quarter: 2013Q3

REPORT INFORMATION
  Report Type: Spontaneous
  Country: US (occurrence: None)
  Receive Date: 20130913
  Receipt Date: 20130913
  Transmission Date: 20140515
  Serious: Yes (Hospitalization)
  Sender: FDA-Public Use
  Company Number: 1000038491

PATIENT
  Age: 58 Year
  Sex: Male

DRUGS (4)
  1. CELEXA [Suspect]
  2. BARBITURATES AND DERIVATIVES [Suspect]
  3. FIORICET [Suspect]
  4. METHADONE [Suspect]

REACTIONS (2)
  - Suicide attempt [None]
  - Intentional overdose [None]
